FAERS Safety Report 5081568-1 (Version None)
Quarter: 2006Q3

REPORT INFORMATION
  Report Type: 
  Country: None (occurrence: None)
  Receive Date: 20060811
  Receipt Date: 20060803
  Transmission Date: 20061208
  Serious: Yes (Hospitalization)
  Sender: FDA-Public Use
  Company Number: 228327

PATIENT
  Age: 52 Year
  Sex: Male
  Weight: 83.5 kg

DRUGS (9)
  1. AVASTIN [Suspect]
     Indication: COLORECTAL CANCER METASTATIC
     Dosage: 5 MG/KG
     Dates: start: 20060720
  2. IRINOTECAN HCL [Suspect]
     Indication: COLORECTAL CANCER METASTATIC
     Dosage: 180 MG/M2
     Dates: start: 20060720
  3. LEUCOVORIN CALCIUM [Suspect]
     Indication: COLORECTAL CANCER METASTATIC
     Dosage: 400 MG/M2
     Dates: start: 20060720
  4. FLUOROURACIL [Suspect]
     Indication: COLORECTAL CANCER METASTATIC
     Dates: start: 20060720
  5. MULTIVITAMIN (MULTIVITAMINS NOS) [Concomitant]
  6. FE SULFATE (FERROUS SULFATE) [Concomitant]
  7. LOMOTIL [Concomitant]
  8. PROPOXYPHENE (PROPOXYPHENE NOS) [Concomitant]
  9. AUGMENTIN '250' [Concomitant]

REACTIONS (3)
  - DYSURIA [None]
  - PELVIC INFECTION [None]
  - SEROMA [None]
